FAERS Safety Report 17825713 (Version 1)
Quarter: 2020Q2

REPORT INFORMATION
  Report Type: Spontaneous
  Country: CA (occurrence: CA)
  Receive Date: 20200526
  Receipt Date: 20200526
  Transmission Date: 20200714
  Serious: Yes (Other)
  Sender: FDA-Public Use
  Company Number: CA-TEVA-2020-CA-1238785

PATIENT
  Age: 73 Year
  Sex: Male
  Weight: 78 kg

DRUGS (3)
  1. ETOPOSIDE. [Suspect]
     Active Substance: ETOPOSIDE
     Indication: PANCREATIC CARCINOMA
     Dosage: 1 DOSAGE FORM, 1 EVERY 3 WEEK, FOR 52 DAYS
     Route: 065
  2. GRANISETRON [Concomitant]
     Active Substance: GRANISETRON
  3. DEXAMETHASONE. [Concomitant]
     Active Substance: DEXAMETHASONE

REACTIONS (4)
  - Malaise [Recovered/Resolved]
  - Taste disorder [Recovered/Resolved]
  - Oxygen saturation decreased [Recovered/Resolved]
  - Back pain [Recovered/Resolved]
